FAERS Safety Report 4550627-1 (Version None)
Quarter: 2004Q4

REPORT INFORMATION
  Report Type: 
  Country: None (occurrence: None)
  Receive Date: 20041227
  Receipt Date: 20040909
  Transmission Date: 20050328
  Serious: No
  Sender: FDA-Public Use
  Company Number: 04P-163-0272841-00

PATIENT
  Age: 82 Year
  Sex: Female
  Weight: 58.514 kg

DRUGS (2)
  1. HUMIRA [Suspect]
     Indication: RHEUMATOID ARTHRITIS
     Dosage: 40 MG, 1 IN 2 WK, SUBCUTANEOUS
     Route: 058
     Dates: start: 20040401
  2. METHOTREXATE [Concomitant]

REACTIONS (7)
  - BOWEL MOVEMENT IRREGULARITY [None]
  - FATIGUE [None]
  - FEELING ABNORMAL [None]
  - PAIN [None]
  - POLYP [None]
  - RASH [None]
  - WEIGHT DECREASED [None]
